FAERS Safety Report 5926185-3 (Version None)
Quarter: 2008Q4

REPORT INFORMATION
  Report Type: 
  Country: None (occurrence: None)
  Receive Date: 20081017
  Receipt Date: 20081003
  Transmission Date: 20090506
  Serious: Yes (Other)
  Sender: FDA-Public Use
  Company Number: 034966

PATIENT
  Age: 21 Year
  Sex: Female

DRUGS (2)
  1. CLARAVIS [Suspect]
     Dosage: 40 MG, QD, ORAL
     Route: 048
     Dates: start: 20080814, end: 20080913
  2. AMNESTEEM [Suspect]
     Dosage: 40 MG, QD, ORAL
     Route: 048
     Dates: start: 20080623, end: 20080723

REACTIONS (3)
  - ABORTION INDUCED [None]
  - TREATMENT NONCOMPLIANCE [None]
  - UNINTENDED PREGNANCY [None]
